FAERS Safety Report 22092444 (Version 1)
Quarter: 2023Q1

REPORT INFORMATION
  Report Type: Report from Study
  Country: CA (occurrence: CA)
  Receive Date: 20230314
  Receipt Date: 20230314
  Transmission Date: 20230418
  Serious: Yes (Other)
  Sender: FDA-Public Use
  Company Number: None

PATIENT
  Age: 70 Year
  Sex: Female
  Weight: 75 kg

DRUGS (8)
  1. METHOTREXATE [Suspect]
     Active Substance: METHOTREXATE
     Indication: Product used for unknown indication
  2. ACTEMRA [Suspect]
     Active Substance: TOCILIZUMAB
     Indication: Rheumatoid arthritis
     Dosage: 1 EVERY 1 WEEKS
     Route: 058
  3. RABEPRAZOLE SODIUM [Suspect]
     Active Substance: RABEPRAZOLE SODIUM
     Indication: Product used for unknown indication
  4. ACETAMINOPHEN [Concomitant]
     Active Substance: ACETAMINOPHEN
  5. FOLIC ACID [Concomitant]
     Active Substance: FOLIC ACID
  6. LEUCOVORIN [Concomitant]
     Active Substance: LEUCOVORIN
  7. MELOXICAM [Concomitant]
     Active Substance: MELOXICAM
  8. ROSUVASTATIN [Concomitant]
     Active Substance: ROSUVASTATIN
     Route: 058

REACTIONS (14)
  - Abdominal distension [Unknown]
  - Acne [Unknown]
  - Alanine aminotransferase increased [Unknown]
  - Arthralgia [Unknown]
  - Cardiac disorder [Unknown]
  - Dyslipidaemia [Unknown]
  - Helicobacter infection [Unknown]
  - Hiatus hernia [Unknown]
  - Joint destruction [Unknown]
  - Lacrimation increased [Unknown]
  - Osteoarthritis [Unknown]
  - Rheumatoid factor [Unknown]
  - Vitamin D decreased [Unknown]
  - Vomiting [Unknown]
